FAERS Safety Report 11880048 (Version 1)
Quarter: 2015Q4

REPORT INFORMATION
  Report Type: Spontaneous
  Country: DE (occurrence: DE)
  Receive Date: 20151230
  Receipt Date: 20151230
  Transmission Date: 20160305
  Serious: Yes (Hospitalization)
  Sender: FDA-Public Use
  Company Number: DE-SA-2015SA218354

PATIENT
  Age: 14 Year
  Sex: Female

DRUGS (7)
  1. ERWINASE [Concomitant]
     Active Substance: ASPARAGINASE ERWINIA CHRYSANTHEMI
  2. CYCLOPHOSPHAMIDE. [Suspect]
     Active Substance: CYCLOPHOSPHAMIDE
     Indication: CHEMOTHERAPY
     Route: 065
     Dates: start: 20150910
  3. ETOPOSIDE. [Suspect]
     Active Substance: ETOPOSIDE
     Indication: CHEMOTHERAPY
     Route: 065
     Dates: start: 20150910
  4. TAVOR [Concomitant]
     Active Substance: LORAZEPAM
     Dosage: SUBLINGUAL/BUCCAL
  5. NOVALGIN [Concomitant]
     Active Substance: METAMIZOLE SODIUM
     Dosage: MAX EVERY 6 HOUR
     Route: 048
  6. CLOFARABINE [Suspect]
     Active Substance: CLOFARABINE
     Indication: CHEMOTHERAPY
     Route: 065
     Dates: start: 20150910
  7. KEPINOL [Concomitant]
     Active Substance: SULFAMETHOXAZOLE\TRIMETHOPRIM
     Dosage: TUE AND FRI
     Route: 048
     Dates: start: 201511

REACTIONS (14)
  - Herpes zoster [Unknown]
  - Hepatic function abnormal [Unknown]
  - Bronchopulmonary aspergillosis [Unknown]
  - Neuralgia [Unknown]
  - Generalised oedema [Recovering/Resolving]
  - Urticaria [Unknown]
  - Chest pain [Unknown]
  - Pruritus [Unknown]
  - General physical health deterioration [Recovered/Resolved]
  - Pneumonia [Unknown]
  - Hypersensitivity [Unknown]
  - Pyrexia [Unknown]
  - Bone marrow failure [Recovered/Resolved]
  - Oxygen saturation decreased [Unknown]

NARRATIVE: CASE EVENT DATE: 2015
